FAERS Safety Report 11661520 (Version 1)
Quarter: 2015Q4

REPORT INFORMATION
  Report Type: Spontaneous
  Country: US (occurrence: US)
  Receive Date: 20151026
  Receipt Date: 20151026
  Transmission Date: 20160304
  Serious: No
  Sender: FDA-Public Use
  Company Number: US-BAUSCH-BL-2015-022600

PATIENT
  Age: 81 Year
  Sex: Female
  Weight: 67.19 kg

DRUGS (14)
  1. PROLENSA [Suspect]
     Active Substance: BROMFENAC SODIUM
     Indication: PREOPERATIVE CARE
     Dates: start: 201510
  2. ZETIA 10 MG [Concomitant]
     Indication: BLOOD CHOLESTEROL INCREASED
     Route: 048
  3. MULTI-PROBIOTIC 15 BILLION UNITS [Concomitant]
     Indication: GASTRIC PH DECREASED
  4. FUROSEMIDE 40 MG [Concomitant]
     Active Substance: FUROSEMIDE
     Indication: DIURETIC THERAPY
     Route: 048
  5. LOSARTAN 50 MG [Concomitant]
     Indication: HYPERTENSION
     Dosage: BED TIME
     Route: 048
  6. ASPIRIN 81 MG [Concomitant]
     Active Substance: ASPIRIN
     Indication: PROPHYLAXIS
     Route: 048
  7. VIT D 1000 I.U [Concomitant]
     Indication: BONE DISORDER
     Route: 048
  8. MULTI-PROBIOTIC 15 BILLION UNITS [Concomitant]
     Indication: DIVERTICULITIS
     Route: 048
  9. TIMOLOL GFS GEL 0.5% [Concomitant]
     Indication: GLAUCOMA
     Dosage: IN MORNING
     Route: 047
     Dates: start: 201508
  10. LUMIGAN [Concomitant]
     Active Substance: BIMATOPROST
     Indication: GLAUCOMA
     Dosage: AT BED TIME
     Route: 047
     Dates: start: 2013
  11. MULTIVITAMIN ULTRA VITE 75 II [Concomitant]
     Indication: VITAMIN SUPPLEMENTATION
     Route: 048
  12. BILBERRY [Concomitant]
     Active Substance: BILBERRY
     Indication: VISUAL ACUITY REDUCED
     Dosage: 1 IN MORNING AND 1 AT NIGHT
     Route: 048
  13. GLUCOSAMINE PLUS EXTRA STRENGTH [Concomitant]
     Indication: ARTHRITIS
     Dosage: 1 IN THE AM AND 2 AT NIGHT
     Route: 048
  14. DUREZOL [Concomitant]
     Active Substance: DIFLUPREDNATE
     Indication: PREOPERATIVE CARE
     Route: 047
     Dates: start: 20150928

REACTIONS (1)
  - Off label use [Unknown]

NARRATIVE: CASE EVENT DATE: 20150928
